FAERS Safety Report 15146359 (Version 1)
Quarter: 2018Q3

REPORT INFORMATION
  Report Type: Spontaneous
  Country: CN (occurrence: CN)
  Receive Date: 20180715
  Receipt Date: 20180715
  Transmission Date: 20181010
  Serious: Yes (Hospitalization)
  Sender: FDA-Public Use
  Company Number: CN-009507513-1807CHN002656

PATIENT
  Age: 46 Year
  Sex: Male

DRUGS (2)
  1. CASPOFUNGIN ACETATE. [Suspect]
     Active Substance: CASPOFUNGIN ACETATE
     Indication: URINARY TRACT INFECTION
     Dosage: 50 MG, QD
  2. IMIPENEM AND CILASTATIN [Suspect]
     Active Substance: CILASTATIN SODIUM\IMIPENEM
     Indication: URINARY TRACT INFECTION
     Dosage: 0.5 G, Q8H

REACTIONS (2)
  - Drug ineffective [Recovered/Resolved]
  - Overdose [Unknown]
